FAERS Safety Report 4783376-5 (Version None)
Quarter: 2005Q3

REPORT INFORMATION
  Report Type: 
  Country: None (occurrence: None)
  Receive Date: 20050929
  Receipt Date: 20050919
  Transmission Date: 20060218
  Serious: Yes (Other)
  Sender: FDA-Public Use
  Company Number: US-ROCHE-418389

PATIENT
  Age: 60 Year
  Sex: Male

DRUGS (4)
  1. PEGASYS [Suspect]
     Indication: HEPATITIS C
     Route: 058
     Dates: start: 20050518
  2. COPEGUS [Suspect]
     Indication: HEPATITIS C
     Route: 048
     Dates: start: 20050518
  3. TRICOR [Concomitant]
     Route: 048
  4. OXYCONTIN [Concomitant]
     Route: 048

REACTIONS (4)
  - FATIGUE [None]
  - LYMPHADENOPATHY [None]
  - MYALGIA [None]
  - NAUSEA [None]
